FAERS Safety Report 8832013 (Version 1)
Quarter: 2012Q4

REPORT INFORMATION
  Report Type: 
  Country: US (occurrence: US)
  Receive Date: 20121009
  Receipt Date: 20121009
  Transmission Date: 20130627
  Serious: Yes (Hospitalization, Other)
  Sender: FDA-Public Use
  Company Number: US-ROCHE-1135694

PATIENT
  Sex: Female

DRUGS (8)
  1. RITUXAN [Suspect]
     Indication: IDIOPATHIC THROMBOCYTOPENIC PURPURA
     Route: 065
     Dates: start: 20011221
  2. RITUXAN [Suspect]
     Indication: OFF LABEL USE
  3. ATENOLOL [Concomitant]
  4. AVAPRO [Concomitant]
     Route: 065
  5. MICRO K EXTENCAPS [Concomitant]
  6. PREDNISOLONE [Concomitant]
  7. COLACE [Concomitant]
  8. ARICEPT [Concomitant]

REACTIONS (20)
  - Oral candidiasis [Unknown]
  - Fatigue [Unknown]
  - Decubitus ulcer [Recovered/Resolved]
  - Syncope [Recovered/Resolved]
  - Productive cough [Unknown]
  - Chills [Unknown]
  - Decreased appetite [Unknown]
  - Sputum discoloured [Unknown]
  - Asthenia [Unknown]
  - Paronychia [Recovered/Resolved]
  - Pneumonia [Unknown]
  - Dysphonia [Unknown]
  - Haematochezia [Unknown]
  - Stomatitis [Unknown]
  - Stomatitis [Unknown]
  - Nausea [Unknown]
  - Vomiting [Unknown]
  - Diarrhoea [Unknown]
  - Tachycardia [Unknown]
  - Leukocytosis [Unknown]
